FAERS Safety Report 5511858-7 (Version None)
Quarter: 2007Q4

REPORT INFORMATION
  Report Type: 
  Country: None (occurrence: None)
  Receive Date: 20071109
  Receipt Date: 20071105
  Transmission Date: 20080405
  Serious: Yes (Hospitalization)
  Sender: FDA-Public Use
  Company Number: GB-BOEHRINGER INGELHEIM PHARMACEUTICALS, INC.-2007-DE-06510GD

PATIENT
  Age: 66 Year
  Sex: Male

DRUGS (1)
  1. TIOTROPIUM-BROMIDE [Suspect]
     Indication: CHRONIC OBSTRUCTIVE PULMONARY DISEASE
     Route: 055
     Dates: start: 20030101, end: 20041130

REACTIONS (6)
  - CHRONIC OBSTRUCTIVE PULMONARY DISEASE [None]
  - CONDITION AGGRAVATED [None]
  - DEMENTIA ALZHEIMER'S TYPE [None]
  - ENTEROBACTER INFECTION [None]
  - HAEMOPHILUS INFECTION [None]
  - STENOTROPHOMONAS INFECTION [None]
